FAERS Safety Report 25517444 (Version 4)
Quarter: 2025Q3

REPORT INFORMATION
  Report Type: Spontaneous
  Country: US (occurrence: US)
  Receive Date: 20250704
  Receipt Date: 20250915
  Transmission Date: 20251020
  Serious: No
  Sender: ROCHE
  Company Number: US-ROCHE-10000322408

PATIENT
  Age: 74 Year
  Sex: Male
  Weight: 78.02 kg

DRUGS (10)
  1. ERIVEDGE [Suspect]
     Active Substance: VISMODEGIB
     Indication: Basal cell carcinoma
     Route: 048
     Dates: start: 2025, end: 20250626
  2. ERIVEDGE [Suspect]
     Active Substance: VISMODEGIB
     Route: 048
     Dates: start: 2024, end: 202506
  3. OXYCODONE [Concomitant]
     Active Substance: OXYCODONE
  4. LUNESTA [Concomitant]
     Active Substance: ESZOPICLONE
     Route: 048
  5. LUNESTA [Concomitant]
     Active Substance: ESZOPICLONE
     Route: 048
  6. PROPRANOLOL [Concomitant]
     Active Substance: PROPRANOLOL HYDROCHLORIDE
     Indication: Anxiety
     Route: 048
  7. PROPRANOLOL [Concomitant]
     Active Substance: PROPRANOLOL HYDROCHLORIDE
     Route: 048
  8. ATIVAN [Concomitant]
     Active Substance: LORAZEPAM
     Indication: Anxiety
     Route: 048
  9. ATIVAN [Concomitant]
     Active Substance: LORAZEPAM
     Route: 048
  10. SINEMET [Concomitant]
     Active Substance: CARBIDOPA\LEVODOPA
     Indication: Parkinson^s disease
     Route: 048
     Dates: start: 1991

REACTIONS (3)
  - Muscle spasms [Not Recovered/Not Resolved]
  - Pain [Recovered/Resolved]
  - Insomnia [Unknown]

NARRATIVE: CASE EVENT DATE: 20240101
